FAERS Safety Report 6609929-7 (Version None)
Quarter: 2010Q1

REPORT INFORMATION
  Report Type: 
  Country: None (occurrence: None)
  Receive Date: 20100302
  Receipt Date: 20100226
  Transmission Date: 20100710
  Serious: Yes (Death, Life-Threatening)
  Sender: FDA-Public Use
  Company Number: DE-B.I. PHARMACEUTICALS,INC./RIDGEFIELD-2010-DE-01372DE

PATIENT
  Sex: Female
  Weight: 84 kg

DRUGS (4)
  1. AGGRENOX [Suspect]
     Indication: CEREBROVASCULAR ACCIDENT
     Dosage: 2 ANZ
     Route: 048
  2. RAMIPRIL [Concomitant]
     Dosage: 1 ANZ
     Route: 048
  3. SIMVASTATIN [Concomitant]
     Dosage: 40 MG
     Route: 048
  4. AMLODIPIN 5 MG [Concomitant]
     Dosage: 10 MG
     Route: 048

REACTIONS (3)
  - CEREBRAL HAEMORRHAGE [None]
  - CEREBRAL INFARCTION [None]
  - CEREBROVASCULAR ACCIDENT [None]
